FAERS Safety Report 19481724 (Version 1)
Quarter: 2021Q3

REPORT INFORMATION
  Report Type: Spontaneous
  Country: MX (occurrence: MX)
  Receive Date: 20210701
  Receipt Date: 20210701
  Transmission Date: 20211014
  Serious: Yes (Hospitalization, Other)
  Sender: FDA-Public Use
  Company Number: MX-ASTRAZENECA-2021A572040

PATIENT
  Age: 74 Year
  Sex: Female
  Weight: 73 kg

DRUGS (9)
  1. ACLASTA [Suspect]
     Active Substance: ZOLEDRONIC ACID
     Indication: OSTEOPOROSIS
     Dosage: 1 VIAL PER YEAR
     Route: 042
     Dates: start: 20190609
  2. PREDNISONE. [Concomitant]
     Active Substance: PREDNISONE
     Indication: BLOOD CORTISOL
     Route: 048
  3. ARCOXIA [Concomitant]
     Active Substance: ETORICOXIB
     Indication: PAIN
     Route: 048
  4. ZANIDIP [Concomitant]
     Active Substance: LERCANIDIPINE HYDROCHLORIDE
     Indication: HYPERTENSION
  5. XARELTO [Concomitant]
     Active Substance: RIVAROXABAN
     Indication: ANTICOAGULANT THERAPY
  6. PREDNISONE. [Concomitant]
     Active Substance: PREDNISONE
     Indication: BLOOD CORTISOL
     Route: 048
  7. NEXIUM MUPS [Suspect]
     Active Substance: ESOMEPRAZOLE
     Indication: ABDOMINAL PAIN UPPER
     Route: 048
  8. TELMISARTAN. [Concomitant]
     Active Substance: TELMISARTAN
     Indication: HYPERTENSION
     Route: 048
  9. BISOPROLOL [Concomitant]
     Active Substance: BISOPROLOL
     Indication: HYPERTENSION

REACTIONS (4)
  - Pain [Recovered/Resolved]
  - Spinal fracture [Unknown]
  - Pathological fracture [Unknown]
  - Oxygen saturation decreased [Recovered/Resolved]

NARRATIVE: CASE EVENT DATE: 20210611
